FAERS Safety Report 4456400-7 (Version None)
Quarter: 2004Q3

REPORT INFORMATION
  Report Type: 
  Country: None (occurrence: None)
  Receive Date: 20040902
  Receipt Date: 20040525
  Transmission Date: 20050211
  Serious: No
  Sender: FDA-Public Use
  Company Number: 200413098BWH

PATIENT
  Sex: Male
  Weight: 112.0385 kg

DRUGS (5)
  1. LEVITRA [Suspect]
     Dosage: 10 MG, TOTAL DAILYI, ORAL
     Route: 048
     Dates: start: 20040101
  2. LEVITRA [Suspect]
     Dosage: 10 MG, TOTAL DAILYI, ORAL
     Route: 048
     Dates: start: 20040201
  3. LEVITRA [Suspect]
     Dosage: 10 MG, TOTAL DAILYI, ORAL
     Route: 048
     Dates: start: 20040219
  4. PREVACID [Concomitant]
  5. LIPITOR [Concomitant]

REACTIONS (1)
  - ERECTILE DYSFUNCTION [None]
